FAERS Safety Report 5846568-X (Version None)
Quarter: 2008Q3

REPORT INFORMATION
  Report Type: 
  Country: None (occurrence: None)
  Receive Date: 20080815
  Receipt Date: 20080814
  Transmission Date: 20090109
  Serious: Yes (Hospitalization)
  Sender: FDA-Public Use
  Company Number: A0739741A

PATIENT
  Age: 52 Year
  Sex: Female

DRUGS (6)
  1. ALLI [Suspect]
     Indication: WEIGHT LOSS DIET
     Route: 048
     Dates: start: 20071225, end: 20080711
  2. LYRICA [Concomitant]
  3. LORTAB [Concomitant]
  4. FLEXERIL [Concomitant]
  5. LANTUS [Concomitant]
     Route: 058
  6. NOVOLOG [Concomitant]
     Route: 058

REACTIONS (11)
  - BALANCE DISORDER [None]
  - BLOOD SODIUM DECREASED [None]
  - ELECTROLYTE IMBALANCE [None]
  - FALL [None]
  - FATIGUE [None]
  - HALLUCINATION [None]
  - HYPERSOMNIA [None]
  - HYPOKALAEMIA [None]
  - IRON DEFICIENCY [None]
  - MALABSORPTION [None]
  - PHARMACEUTICAL PRODUCT COMPLAINT [None]
